FAERS Safety Report 24015775 (Version 1)
Quarter: 2024Q2

REPORT INFORMATION
  Report Type: Spontaneous
  Country: US (occurrence: US)
  Receive Date: 20240626
  Receipt Date: 20240626
  Transmission Date: 20240716
  Serious: No
  Sender: FDA-Public Use
  Company Number: US-Blueprint Medicines Corporation-3998

PATIENT
  Sex: Male

DRUGS (2)
  1. AYVAKIT [Suspect]
     Active Substance: AVAPRITINIB
     Indication: Brain neoplasm malignant
     Route: 065
     Dates: start: 20240306
  2. AYVAKIT [Suspect]
     Active Substance: AVAPRITINIB
     Indication: Isovaleric acidaemia
     Route: 065

REACTIONS (4)
  - Rash [Unknown]
  - Lethargy [Unknown]
  - Face oedema [Unknown]
  - Off label use [Unknown]
